FAERS Safety Report 9284572 (Version 1)
Quarter: 2013Q2

REPORT INFORMATION
  Report Type: Spontaneous
  Country: GB (occurrence: GB)
  Receive Date: 20130512
  Receipt Date: 20130512
  Transmission Date: 20140414
  Serious: Yes (Life-Threatening)
  Sender: FDA-Public Use
  Company Number: GB-009507513-1305GBR005360

PATIENT
  Age: 48 Year
  Sex: Male
  Weight: 80 kg

DRUGS (4)
  1. ZISPIN SOLTAB [Suspect]
     Indication: DEPRESSION
     Dosage: 15 MG, UNK
     Route: 048
     Dates: start: 20130403, end: 20130408
  2. SIMVASTATIN [Concomitant]
  3. VENLAFAXINE HYDROCHLORIDE [Concomitant]
  4. ZOPICLONE [Concomitant]

REACTIONS (5)
  - Fear [Unknown]
  - Delusion [Unknown]
  - Psychotic disorder [Recovered/Resolved]
  - Agitation [Unknown]
  - Hallucination, auditory [Recovered/Resolved]
